FAERS Safety Report 17796468 (Version 1)
Quarter: 2020Q2

REPORT INFORMATION
  Report Type: Report from Study
  Country: PT (occurrence: PT)
  Receive Date: 20200518
  Receipt Date: 20200518
  Transmission Date: 20200714
  Serious: Yes (Other)
  Sender: FDA-Public Use
  Company Number: PT-ROCHE-2592142

PATIENT
  Sex: Female

DRUGS (2)
  1. ROACTEMRA [Suspect]
     Active Substance: TOCILIZUMAB
     Indication: RHEUMATOID ARTHRITIS
     Route: 058
     Dates: start: 20190810
  2. LEPICORTINOLO [PREDNISOLONE] [Concomitant]
     Active Substance: PREDNISOLONE
     Route: 048

REACTIONS (9)
  - Hypotension [Recovered/Resolved]
  - Fall [Recovered/Resolved]
  - Pain [Recovered/Resolved]
  - Nausea [Recovered/Resolved]
  - Ligament sprain [Recovered/Resolved]
  - Diarrhoea [Recovered/Resolved]
  - Drug interaction [Unknown]
  - Syncope [Recovered/Resolved]
  - Vomiting [Recovered/Resolved]

NARRATIVE: CASE EVENT DATE: 2020
